FAERS Safety Report 12309985 (Version 2)
Quarter: 2016Q2

REPORT INFORMATION
  Report Type: Spontaneous
  Country: US (occurrence: US)
  Receive Date: 20160427
  Receipt Date: 20160521
  Transmission Date: 20160815
  Serious: Yes (Disabling, Other)
  Sender: FDA-Public Use
  Company Number: US-SUN PHARMACEUTICAL INDUSTRIES LTD-2016US-115594

PATIENT
  Age: 45 Year
  Sex: Male

DRUGS (8)
  1. PAMIDRONATE [Suspect]
     Active Substance: PAMIDRONATE DISODIUM
     Indication: OSTEOPROTEGERIN
     Dosage: UNK
     Route: 065
  2. RISEDRONATE [Suspect]
     Active Substance: RISEDRONATE SODIUM
     Indication: OSTEOPROTEGERIN
     Dosage: UNK
     Route: 048
  3. CALCIUM [Suspect]
     Active Substance: CALCIUM
     Indication: PRODUCT USED FOR UNKNOWN INDICATION
     Route: 065
  4. DIDRONEL [Suspect]
     Active Substance: ETIDRONATE DISODIUM
     Indication: OSTEOPROTEGERIN
     Dosage: UNK
     Route: 065
  5. DENOSUMAB [Concomitant]
     Active Substance: DENOSUMAB
     Indication: PRODUCT USED FOR UNKNOWN INDICATION
     Dosage: UNK
     Route: 065
  6. ALFACALCIDOL [Suspect]
     Active Substance: ALFACALCIDOL
     Indication: PRODUCT USED FOR UNKNOWN INDICATION
     Route: 065
  7. ALENDRONIC ACID [Suspect]
     Active Substance: ALENDRONIC ACID
     Indication: OSTEOPROTEGERIN
     Dosage: UNK
     Route: 065
  8. CALCITONIN, HUMAN [Concomitant]
     Indication: PRODUCT USED FOR UNKNOWN INDICATION
     Dosage: UNK
     Route: 058

REACTIONS (4)
  - Deafness [Unknown]
  - Extraskeletal ossification [Unknown]
  - External ear disorder [Unknown]
  - Endotracheal intubation complication [Unknown]
